FAERS Safety Report 5510939-1 (Version None)
Quarter: 2007Q4

REPORT INFORMATION
  Report Type: 
  Country: None (occurrence: None)
  Receive Date: 20071106
  Receipt Date: 20071106
  Transmission Date: 20080405
  Serious: Yes (Other)
  Sender: FDA-Public Use
  Company Number: None

PATIENT
  Sex: Female

DRUGS (1)
  1. BETASERON [Suspect]
     Indication: MULTIPLE SCLEROSIS
     Dosage: INJECT 1ML EVERY OTHER DAY SQ
     Route: 058
     Dates: start: 20070906, end: 20071008

REACTIONS (1)
  - VERTIGO [None]
